FAERS Safety Report 7994757-0 (Version None)
Quarter: 2011Q4

REPORT INFORMATION
  Report Type: 
  Country: None (occurrence: None)
  Receive Date: 20111220
  Receipt Date: 20111213
  Transmission Date: 20120403
  Serious: Yes (Death)
  Sender: FDA-Public Use
  Company Number: US-PFIZER INC-2011305348

PATIENT
  Sex: Male

DRUGS (1)
  1. SUTENT [Suspect]
     Indication: RENAL CANCER
     Dosage: 25 MG, UNK
     Dates: start: 20080417

REACTIONS (1)
  - DEATH [None]
